FAERS Safety Report 6709268 (Version 33)
Quarter: 2012Q4

REPORT INFORMATION
  Report Type: 
  Country: US (occurrence: US)
  Receive Date: 20080724
  Receipt Date: 20120904
  Transmission Date: 20130627
  Serious: Yes (Other)
  Sender: FDA-Public Use
  Company Number: PHEH2008US06330

PATIENT
  Age: 75 Year
  Sex: Female
  Weight: 45.35 kg

DRUGS (69)
  1. ZOMETA [Suspect]
     Indication: OSTEOPOROSIS
     Dates: start: 20040322, end: 20051102
  2. PERIDEX [Concomitant]
  3. CLINDAMYCIN [Concomitant]
  4. TAMOXIFEN [Concomitant]
  5. MULTIVITAMIN ^LAPPE^ [Concomitant]
  6. CALCIUM [Concomitant]
  7. FEMARA [Concomitant]
  8. SIMVASTATIN [Concomitant]
  9. FOLIC ACID [Concomitant]
     Dosage: 1 mg, daily
  10. ZANTAC [Concomitant]
     Dosage: 300 mg,
     Dates: start: 20050218
  11. PRILOSEC [Concomitant]
     Dosage: 40 mg,
     Dates: start: 20050218
  12. EVOXAC [Concomitant]
     Dosage: 30 mg,
  13. AVITA [Concomitant]
  14. ZOCOR ^DIECKMANN^ [Concomitant]
     Dosage: 10 mg,
  15. ZITHROMAX ^HEINRICH MACK^ [Concomitant]
     Dosage: 250 mg,
  16. HYDROCODONE [Concomitant]
  17. ENDOCET [Concomitant]
  18. DIAZEPAM [Concomitant]
     Dosage: 5 mg,
  19. PROPOXYPHENE NAPSYLATE [Concomitant]
  20. LIPITOR                                 /NET/ [Concomitant]
     Dosage: 10 mg,
  21. FOSAMAX [Concomitant]
  22. PROCHLORPERAZINE [Concomitant]
     Dosage: 5 mg,
  23. ZYRTEC [Concomitant]
     Dosage: 10 mg,
  24. RHINOCORT AQUA [Concomitant]
     Route: 045
  25. ISOXSUPRINE [Concomitant]
     Dosage: 10 mg,
  26. CIPROFLOXACIN HYDROCHLORIDE [Concomitant]
     Dosage: 500 mg,
  27. TOBRADEX [Concomitant]
  28. PRAVACHOL [Concomitant]
     Dosage: 20 mg,
  29. DIPHENOXYLATE W/ATROPINE SULFATE [Concomitant]
  30. MACROBID [Concomitant]
     Dosage: 100 mg,
  31. METROLOTION [Concomitant]
     Route: 061
  32. ACETIC ACID [Concomitant]
  33. ERYTHROMYCIN [Concomitant]
  34. TANNIC ACID [Concomitant]
  35. ALLEGRA [Concomitant]
  36. LEVAQUIN [Concomitant]
     Dosage: 500 mg,
  37. TAMIFLU (OSELTAMIVIR PHOSPHATE) [Concomitant]
     Dosage: 75 mg,
  38. MECLIZINE [Concomitant]
     Dosage: 12.5 mg,
  39. LESCOL XL [Concomitant]
     Dosage: 80 mg,
  40. CLARITHROMYCIN [Concomitant]
     Dosage: 500 mg,
  41. CHLORHEXIDINE [Concomitant]
  42. TRIAMCINOLONE [Concomitant]
  43. CHOLESTYRAMINE RESIN [Concomitant]
  44. ALPRAZOLAM [Concomitant]
     Dosage: 0.25 mg,
  45. COMBGEN [Concomitant]
  46. NITROFURANTOIN [Concomitant]
  47. DIPHENHYDRAMINE [Concomitant]
     Dosage: 50 mg,
  48. TRETINOIN [Concomitant]
  49. SKELAXIN [Concomitant]
     Dosage: 800 mg,
  50. ASPIRIN ^BAYER^ [Concomitant]
  51. CENTRUM SILVER [Concomitant]
  52. CITRACAL PLUS [Concomitant]
  53. FLEXERIL [Concomitant]
  54. XANAX [Concomitant]
  55. FISH OIL [Concomitant]
  56. PREVACID [Concomitant]
  57. BACTRIM [Concomitant]
  58. FLAGYL [Concomitant]
     Dosage: 500 mg, QID for 6 days
  59. FASLODEX [Concomitant]
  60. MIACALCIN [Concomitant]
  61. PROPRANOLOL HYDROCHLORIDE [Concomitant]
  62. RALOXIFENE HYDROCHLORIDE [Concomitant]
  63. RANITIDINE HYDROCHLORIDE [Concomitant]
  64. CITALOPRAM HYDROBROMIDE [Concomitant]
  65. EVISTA [Concomitant]
  66. ZEN [Concomitant]
  67. PROPANOLOL [Concomitant]
  68. EZETIMIBE [Concomitant]
     Dosage: 10 mg, QD,orally
     Route: 048
  69. PRAVASTATIN SODIUM [Concomitant]
     Dosage: 10 mg,

REACTIONS (100)
  - Osteonecrosis of jaw [Recovered/Resolved]
  - Pain [Unknown]
  - Anxiety [Unknown]
  - Pain in jaw [Unknown]
  - Tooth impacted [Unknown]
  - Bone disorder [Unknown]
  - Gingival disorder [Unknown]
  - Gingival bleeding [Unknown]
  - Osteomyelitis [Unknown]
  - Osteolysis [Unknown]
  - Periodontal disease [Unknown]
  - Scar [Unknown]
  - Gingival oedema [Unknown]
  - Bone loss [Unknown]
  - Stomatitis [Unknown]
  - Fistula [Unknown]
  - Jaw disorder [Unknown]
  - Anhedonia [Unknown]
  - Gingival recession [Unknown]
  - Gingival hyperplasia [Unknown]
  - Discomfort [Unknown]
  - Hypophagia [Unknown]
  - Emotional distress [Unknown]
  - Gingivitis [Unknown]
  - Oropharyngeal plaque [Unknown]
  - Injury [Unknown]
  - Malaise [Unknown]
  - Mitral valve incompetence [Unknown]
  - Ischaemia [Unknown]
  - Goitre [Unknown]
  - Influenza [Unknown]
  - Respiratory disorder [Unknown]
  - Gastrooesophageal reflux disease [Unknown]
  - Osteoarthritis [Unknown]
  - Aortic arteriosclerosis [Unknown]
  - Fractured sacrum [Unknown]
  - Spinal osteoarthritis [Unknown]
  - Lung infiltration [Unknown]
  - Osteopenia [Unknown]
  - Sjogren^s syndrome [Unknown]
  - Mucosal dryness [Unknown]
  - Hypertension [Unknown]
  - Fibrosis [Unknown]
  - Cellulitis [Unknown]
  - Viral infection [Unknown]
  - Vitreous haemorrhage [Unknown]
  - Rotator cuff syndrome [Unknown]
  - Ear haemorrhage [Unknown]
  - Laryngeal oedema [Unknown]
  - Chronic obstructive pulmonary disease [Unknown]
  - Thyroid adenoma [Unknown]
  - Thyroid neoplasm [Unknown]
  - Spinal cord disorder [Unknown]
  - Gait disturbance [Unknown]
  - Subgaleal haematoma [Unknown]
  - Hiatus hernia [Unknown]
  - Gastrointestinal tract adenoma [Unknown]
  - Angiopathy [Unknown]
  - Melanocytic naevus [Unknown]
  - Morton^s neuroma [Unknown]
  - Trigonitis [Unknown]
  - Rheumatic heart disease [Unknown]
  - Myalgia [Unknown]
  - Impetigo [Unknown]
  - Diarrhoea [Unknown]
  - Chronic sinusitis [Unknown]
  - Foot deformity [Unknown]
  - Lipids increased [Unknown]
  - Nodule [Unknown]
  - Feeling jittery [Unknown]
  - Dyspnoea [Unknown]
  - Palpitations [Unknown]
  - Heart rate increased [Unknown]
  - Heart rate irregular [Unknown]
  - Fall [Unknown]
  - Musculoskeletal pain [Unknown]
  - Speech disorder [Unknown]
  - Dry mouth [Unknown]
  - Decreased appetite [Unknown]
  - Dysphonia [Unknown]
  - Facial pain [Unknown]
  - Back pain [Unknown]
  - Constipation [Unknown]
  - Inflammation [Unknown]
  - Tremor [Unknown]
  - Acute sinusitis [Unknown]
  - Dizziness [Unknown]
  - Fatigue [Unknown]
  - Neck pain [Unknown]
  - Gastrointestinal mucosal disorder [Unknown]
  - Contusion [Unknown]
  - Oral herpes [Unknown]
  - Laceration [Unknown]
  - Pollakiuria [Unknown]
  - Hypertonic bladder [Unknown]
  - Eustachian tube dysfunction [Unknown]
  - Arthropathy [Unknown]
  - Osteonecrosis [Unknown]
  - Anaemia [Unknown]
  - Oropharyngeal pain [Unknown]
